FAERS Safety Report 5540860-4 (Version None)
Quarter: 2007Q4

REPORT INFORMATION
  Report Type: 
  Country: None (occurrence: None)
  Receive Date: 20071129
  Receipt Date: 20070731
  Transmission Date: 20080405
  Serious: Yes (Other)
  Sender: FDA-Public Use
  Company Number: US200707007170

PATIENT
  Age: 62 Year
  Sex: Female

DRUGS (5)
  1. ZYPREXA [Suspect]
     Indication: SCHIZOPHRENIA
     Dosage: 5 MG, 2/D,; 10 MG, EACH EVENING,
     Dates: start: 20000630, end: 20030716
  2. ZYPREXA [Suspect]
     Indication: SCHIZOPHRENIA
     Dosage: 5 MG, 2/D,; 10 MG, EACH EVENING,
     Dates: start: 20030122, end: 20030716
  3. TRAZODONE HCL [Concomitant]
  4. DEPAKOTE [Concomitant]
  5. PROZAC [Concomitant]

REACTIONS (8)
  - ASTHENIA [None]
  - BLOOD GLUCOSE INCREASED [None]
  - DIABETES MELLITUS [None]
  - DIZZINESS [None]
  - EYE INJURY [None]
  - FALL [None]
  - SYNCOPE [None]
  - TREMOR [None]
